FAERS Safety Report 4708738-3 (Version None)
Quarter: 2005Q3

REPORT INFORMATION
  Report Type: 
  Country: None (occurrence: None)
  Receive Date: 20050707
  Receipt Date: 20050627
  Transmission Date: 20060218
  Serious: Yes (Other)
  Sender: FDA-Public Use
  Company Number: CA-BRISTOL-MYERS SQUIBB COMPANY-13024419

PATIENT
  Age: 34 Year
  Sex: Female

DRUGS (2)
  1. TRAZODONE HCL [Suspect]
     Indication: DEPRESSION
     Route: 048
  2. DIAZEPAM [Concomitant]
     Dates: start: 20040427, end: 20040428

REACTIONS (4)
  - ANXIETY [None]
  - DEPERSONALISATION [None]
  - MANIA [None]
  - STRESS [None]
